FAERS Safety Report 5918910-2 (Version None)
Quarter: 2008Q4

REPORT INFORMATION
  Report Type: 
  Country: None (occurrence: None)
  Receive Date: 20081015
  Receipt Date: 20081003
  Transmission Date: 20090506
  Serious: Yes (Hospitalization)
  Sender: FDA-Public Use
  Company Number: FR-AMGEN-US306129

PATIENT
  Sex: Female
  Weight: 53 kg

DRUGS (7)
  1. ENBREL [Suspect]
     Indication: RHEUMATOID ARTHRITIS
     Route: 058
     Dates: start: 20060605, end: 20080709
  2. PROFENID [Concomitant]
     Route: 048
     Dates: start: 20060301
  3. ESTRADIOL [Concomitant]
     Route: 048
     Dates: start: 20070901
  4. XANAX [Concomitant]
     Route: 048
     Dates: start: 20060301
  5. OGAST [Concomitant]
     Route: 048
     Dates: start: 20060301
  6. TRAMADOL HCL [Concomitant]
     Route: 065
  7. ESTRADIOL [Concomitant]
     Route: 065

REACTIONS (1)
  - EYE INFECTION TOXOPLASMAL [None]
